FAERS Safety Report 26118267 (Version 1)
Quarter: 2025Q4

REPORT INFORMATION
  Report Type: Spontaneous
  Country: EU (occurrence: EU)
  Receive Date: 20251203
  Receipt Date: 20251203
  Transmission Date: 20260117
  Serious: Yes (Other)
  Sender: MYLAN
  Company Number: EU-IPSEN Group, Research and Development-2025-28425

PATIENT
  Age: 54 Year
  Sex: Male

DRUGS (25)
  1. SUNITINIB [Suspect]
     Active Substance: SUNITINIB
     Indication: Gastroenteropancreatic neuroendocrine tumour disease
     Dosage: UNK
  2. SUNITINIB [Suspect]
     Active Substance: SUNITINIB
     Dosage: UNK
     Route: 065
  3. SUNITINIB [Suspect]
     Active Substance: SUNITINIB
     Dosage: UNK
     Route: 065
  4. SUNITINIB [Suspect]
     Active Substance: SUNITINIB
     Dosage: UNK
  5. LANREOTIDE ACETATE [Suspect]
     Active Substance: LANREOTIDE ACETATE
     Indication: Gastroenteropancreatic neuroendocrine tumour disease
     Dosage: 120 MILLIGRAM (DEEP SUBCUTANEOUS)
     Dates: start: 201902, end: 202111
  6. LANREOTIDE ACETATE [Suspect]
     Active Substance: LANREOTIDE ACETATE
     Dosage: 120 MILLIGRAM (DEEP SUBCUTANEOUS)
     Dates: start: 201902, end: 202111
  7. LANREOTIDE ACETATE [Suspect]
     Active Substance: LANREOTIDE ACETATE
     Dosage: 120 MILLIGRAM (DEEP SUBCUTANEOUS)
     Route: 058
     Dates: start: 201902, end: 202111
  8. LANREOTIDE ACETATE [Suspect]
     Active Substance: LANREOTIDE ACETATE
     Dosage: 120 MILLIGRAM (DEEP SUBCUTANEOUS)
     Route: 058
     Dates: start: 201902, end: 202111
  9. LANREOTIDE ACETATE [Suspect]
     Active Substance: LANREOTIDE ACETATE
     Dosage: 120 MILLIGRAM (DEEP SUBCUTANEOUS)
  10. LANREOTIDE ACETATE [Suspect]
     Active Substance: LANREOTIDE ACETATE
     Dosage: 120 MILLIGRAM (DEEP SUBCUTANEOUS)
  11. LANREOTIDE ACETATE [Suspect]
     Active Substance: LANREOTIDE ACETATE
     Dosage: 120 MILLIGRAM (DEEP SUBCUTANEOUS)
     Route: 058
  12. LANREOTIDE ACETATE [Suspect]
     Active Substance: LANREOTIDE ACETATE
     Dosage: 120 MILLIGRAM (DEEP SUBCUTANEOUS)
     Route: 058
  13. CABOZANTINIB [Suspect]
     Active Substance: CABOZANTINIB
     Indication: Gastroenteropancreatic neuroendocrine tumour disease
     Dosage: UNK
  14. CABOZANTINIB [Suspect]
     Active Substance: CABOZANTINIB
     Dosage: UNK
     Route: 065
  15. CABOZANTINIB [Suspect]
     Active Substance: CABOZANTINIB
     Dosage: UNK
     Route: 065
  16. CABOZANTINIB [Suspect]
     Active Substance: CABOZANTINIB
     Dosage: UNK
  17. EVEROLIMUS [Suspect]
     Active Substance: EVEROLIMUS
     Indication: Gastroenteropancreatic neuroendocrine tumour disease
     Dosage: UNK
  18. EVEROLIMUS [Suspect]
     Active Substance: EVEROLIMUS
     Dosage: UNK
     Route: 065
  19. EVEROLIMUS [Suspect]
     Active Substance: EVEROLIMUS
     Dosage: UNK
     Route: 065
  20. EVEROLIMUS [Suspect]
     Active Substance: EVEROLIMUS
     Dosage: UNK
  21. CAPECITABINE [Suspect]
     Active Substance: CAPECITABINE
     Indication: Gastroenteropancreatic neuroendocrine tumour disease
     Dosage: UNK
  22. CAPECITABINE [Suspect]
     Active Substance: CAPECITABINE
     Dosage: UNK
     Route: 065
  23. CAPECITABINE [Suspect]
     Active Substance: CAPECITABINE
     Dosage: UNK
     Route: 065
  24. CAPECITABINE [Suspect]
     Active Substance: CAPECITABINE
     Dosage: UNK
  25. TEMOZOLOMIDE [Suspect]
     Active Substance: TEMOZOLOMIDE

REACTIONS (3)
  - Malignant neoplasm progression [Unknown]
  - Ascites [Recovered/Resolved]
  - Cardiac failure [Recovered/Resolved]

NARRATIVE: CASE EVENT DATE: 20211101
